FAERS Safety Report 5724208-8 (Version None)
Quarter: 2008Q2

REPORT INFORMATION
  Report Type: 
  Country: None (occurrence: None)
  Receive Date: 20080430
  Receipt Date: 20080424
  Transmission Date: 20081010
  Serious: Yes (Death, Hospitalization)
  Sender: FDA-Public Use
  Company Number: AT-MERCK-0804AUT00020

PATIENT
  Age: 39 Year
  Sex: Male

DRUGS (4)
  1. CANCIDAS [Suspect]
     Indication: INFECTION
     Route: 041
  2. ANTIMICROBIAL (UNSPECIFIED) [Concomitant]
     Indication: INFECTION
     Route: 065
  3. AMPHOTERICIN B [Concomitant]
     Indication: INFECTION
     Route: 065
  4. POSACONAZOLE [Concomitant]
     Indication: INFECTION
     Route: 065

REACTIONS (1)
  - SEPTIC SHOCK [None]
